FAERS Safety Report 18928615 (Version 1)
Quarter: 2021Q1

REPORT INFORMATION
  Report Type: Spontaneous
  Country: US (occurrence: US)
  Receive Date: 20210223
  Receipt Date: 20210223
  Transmission Date: 20210420
  Serious: Yes (Other)
  Sender: FDA-Public Use
  Company Number: None

PATIENT
  Age: 58 Year
  Sex: Female

DRUGS (16)
  1. DICLOFENAC 1% GEL [Concomitant]
     Active Substance: DICLOFENAC
  2. FLUDROCORTISONE 0.1MG [Concomitant]
  3. FUROSEMIDE 20MG [Concomitant]
     Active Substance: FUROSEMIDE
  4. PREDNISONE 5MG [Concomitant]
     Active Substance: PREDNISONE
  5. FLUCONAZOLE 100MG [Concomitant]
     Active Substance: FLUCONAZOLE
  6. SERTRALINE [Concomitant]
     Active Substance: SERTRALINE HYDROCHLORIDE
  7. ROSUVASTATIN 10MG [Concomitant]
     Active Substance: ROSUVASTATIN
  8. BACTRIM 400?80MG [Concomitant]
  9. NIFEDIPINE 90MG [Concomitant]
  10. SYNTHROID 0.112MG [Concomitant]
  11. TIMOLOL 0.5% OPTH [Concomitant]
  12. EVAMIST 1.53MG SPRAY [Concomitant]
  13. MYCOPHENOLATE [Suspect]
     Active Substance: MYCOPHENOLIC ACID
     Indication: KIDNEY TRANSPLANT REJECTION
     Route: 048
  14. CLONIDINE 0.2MG [Concomitant]
     Active Substance: CLONIDINE
  15. LATANOPROST 0.005% [Concomitant]
     Active Substance: LATANOPROST
  16. NEORAL [Concomitant]
     Active Substance: CYCLOSPORINE

REACTIONS (1)
  - Skin cancer [None]

NARRATIVE: CASE EVENT DATE: 20210101
